FAERS Safety Report 7009778-4 (Version None)
Quarter: 2010Q3

REPORT INFORMATION
  Report Type: 
  Country: None (occurrence: None)
  Receive Date: 20100923
  Receipt Date: 20100913
  Transmission Date: 20110219
  Serious: Yes (Life-Threatening, Hospitalization)
  Sender: FDA-Public Use
  Company Number: FR-JNJFOC-20100906002

PATIENT
  Sex: Female

DRUGS (5)
  1. IXPRIM [Suspect]
     Indication: FOOT FRACTURE
     Route: 048
  2. KARDEGIC [Suspect]
     Indication: ISCHAEMIC HEART DISEASE PROPHYLAXIS
     Route: 048
  3. PLAVIX [Suspect]
     Indication: ISCHAEMIC HEART DISEASE PROPHYLAXIS
     Route: 048
  4. FRACTAL [Concomitant]
     Indication: HYPERLIPIDAEMIA
  5. ATACAND [Concomitant]
     Indication: HYPERTENSION

REACTIONS (1)
  - IDIOPATHIC THROMBOCYTOPENIC PURPURA [None]
